FAERS Safety Report 9079633 (Version 1)
Quarter: 2013Q1

REPORT INFORMATION
  Report Type: Spontaneous
  Country: US (occurrence: US)
  Receive Date: 20130130
  Receipt Date: 20130130
  Transmission Date: 20140127
  Serious: No
  Sender: FDA-Public Use
  Company Number: US-ROCHE-1181101

PATIENT
  Age: 3 Year
  Sex: Female

DRUGS (1)
  1. TAMIFLU [Suspect]
     Indication: INFLUENZA
     Dosage: 6 MG/ML (1 TEASPOON BID FOR 5 DAYS)
     Route: 048
     Dates: start: 20130115

REACTIONS (1)
  - Product taste abnormal [Unknown]
